FAERS Safety Report 4608439-6 (Version None)
Quarter: 2005Q1

REPORT INFORMATION
  Report Type: 
  Country: None (occurrence: None)
  Receive Date: 20050310
  Receipt Date: 20050224
  Transmission Date: 20050727
  Serious: Yes (Hospitalization)
  Sender: FDA-Public Use
  Company Number: 200510457GDS

PATIENT
  Age: 80 Year
  Sex: Female

DRUGS (3)
  1. ADIRO 100 (ACETYLSALICYLIC ACID) [Suspect]
     Dosage: 100 MG, QD, ORAL
     Route: 048
     Dates: start: 20040602, end: 20040608
  2. ENOXAPARIN SODIUM [Suspect]
     Dosage: 100 MG, TOTAL DAILY, SUBCUTANEOUS
     Route: 058
     Dates: start: 20040602, end: 20040608
  3. PLAVIX [Suspect]
     Dosage: 75 MG, TOTAL DAILY, ORAL
     Route: 048
     Dates: end: 20040608

REACTIONS (1)
  - RETROPERITONEAL HAEMATOMA [None]
